FAERS Safety Report 7306017-1 (Version None)
Quarter: 2011Q1

REPORT INFORMATION
  Report Type: 
  Country: None (occurrence: None)
  Receive Date: 20110222
  Receipt Date: 20110214
  Transmission Date: 20110831
  Serious: Yes (Death, Hospitalization)
  Sender: FDA-Public Use
  Company Number: JP-MPIJNJ-2011-00635

PATIENT

DRUGS (11)
  1. VELCADE [Suspect]
     Indication: MULTIPLE MYELOMA
     Dosage: 2.2 MG, CYCLIC
     Route: 042
     Dates: start: 20070525, end: 20070604
  2. VELCADE [Suspect]
     Dosage: 1.8 MG, CYCLIC
     Route: 042
     Dates: start: 20080116, end: 20091028
  3. OXYCONTIN [Concomitant]
     Dosage: 10 MG, UNK
     Route: 048
     Dates: end: 20070711
  4. MAGMITT [Concomitant]
     Dosage: 990 MG, UNK
     Route: 048
  5. PROMAC                             /00024401/ [Concomitant]
     Dosage: 1 G, UNK
     Route: 048
  6. BAKTAR [Concomitant]
     Dosage: 1 DF, UNK
     Route: 048
  7. GANATON [Concomitant]
     Dosage: 100 MG, UNK
     Route: 048
  8. VELCADE [Suspect]
     Dosage: 2.1 MG, CYCLIC
     Route: 042
     Dates: start: 20070711, end: 20070718
  9. TAKEPRON [Concomitant]
     Dosage: 15 MG, UNK
     Route: 048
  10. ALKERAN [Concomitant]
     Dosage: 10 MG, UNK
     Route: 048
     Dates: start: 20090507, end: 20090919
  11. NOVAMIN                            /00013301/ [Concomitant]
     Dosage: 10 MG, UNK
     Route: 048
     Dates: end: 20070711

REACTIONS (2)
  - MULTIPLE MYELOMA [None]
  - HOSPITALISATION [None]
